FAERS Safety Report 6446203-6 (Version None)
Quarter: 2009Q4

REPORT INFORMATION
  Report Type: 
  Country: None (occurrence: None)
  Receive Date: 20091119
  Receipt Date: 20091112
  Transmission Date: 20100525
  Serious: Yes (Other)
  Sender: FDA-Public Use
  Company Number: DE-JNJFOC-20091103496

PATIENT
  Age: 25 Year
  Sex: Male

DRUGS (19)
  1. RISPERDAL [Suspect]
     Route: 048
     Dates: start: 20090208, end: 20090516
  2. RISPERDAL [Suspect]
     Route: 048
     Dates: start: 20090208, end: 20090516
  3. RISPERDAL [Suspect]
     Route: 048
     Dates: start: 20090208, end: 20090516
  4. RISPERDAL [Suspect]
     Route: 048
     Dates: start: 20090208, end: 20090516
  5. RISPERDAL [Suspect]
     Route: 048
     Dates: start: 20090208, end: 20090516
  6. RISPERDAL [Suspect]
     Indication: DRUG USE FOR UNKNOWN INDICATION
     Route: 048
     Dates: start: 20090208, end: 20090516
  7. LEPONEX [Suspect]
     Route: 048
     Dates: start: 20090312
  8. LEPONEX [Suspect]
     Route: 048
     Dates: start: 20090312
  9. LEPONEX [Suspect]
     Route: 048
     Dates: start: 20090312
  10. LEPONEX [Suspect]
     Route: 048
     Dates: start: 20090312
  11. LEPONEX [Suspect]
     Route: 048
     Dates: start: 20090312
  12. LEPONEX [Suspect]
     Route: 048
     Dates: start: 20090312
  13. LEPONEX [Suspect]
     Route: 048
     Dates: start: 20090312
  14. LEPONEX [Suspect]
     Indication: DRUG USE FOR UNKNOWN INDICATION
     Route: 048
     Dates: start: 20090312
  15. FLUVOXAMINE MALEATE [Suspect]
     Route: 048
     Dates: start: 20090313
  16. FLUVOXAMINE MALEATE [Suspect]
     Route: 048
     Dates: start: 20090313
  17. FLUVOXAMINE MALEATE [Suspect]
     Route: 048
     Dates: start: 20090313
  18. FLUVOXAMINE MALEATE [Suspect]
     Route: 048
     Dates: start: 20090313
  19. FLUVOXAMINE MALEATE [Suspect]
     Indication: DRUG USE FOR UNKNOWN INDICATION
     Route: 048
     Dates: start: 20090313

REACTIONS (4)
  - HYPERLIPIDAEMIA [None]
  - SALIVARY HYPERSECRETION [None]
  - SEDATION [None]
  - WEIGHT INCREASED [None]
